FAERS Safety Report 8228099-5 (Version None)
Quarter: 2012Q1

REPORT INFORMATION
  Report Type: 
  Country: None (occurrence: None)
  Receive Date: 20120322
  Receipt Date: 20111223
  Transmission Date: 20120608
  Serious: Yes (Life-Threatening)
  Sender: FDA-Public Use
  Company Number: US-BRISTOL-MYERS SQUIBB COMPANY-16314825

PATIENT
  Sex: Male

DRUGS (1)
  1. ERBITUX [Suspect]
     Indication: HEAD AND NECK CANCER
     Dosage: INFUSION

REACTIONS (5)
  - DYSPNOEA [None]
  - SWOLLEN TONGUE [None]
  - CHEST PAIN [None]
  - HYPOTENSION [None]
  - RASH GENERALISED [None]
